FAERS Safety Report 9438696 (Version 1)
Quarter: 2013Q3

REPORT INFORMATION
  Report Type: Spontaneous
  Country: FR (occurrence: FR)
  Receive Date: 20130802
  Receipt Date: 20130802
  Transmission Date: 20140515
  Serious: Yes (Life-Threatening)
  Sender: FDA-Public Use
  Company Number: FR-BAYER-2013-093356

PATIENT
  Age: 43 Year
  Sex: Female
  Weight: 53 kg

DRUGS (3)
  1. BETAFERON [Suspect]
     Indication: MULTIPLE SCLEROSIS
     Dosage: UNK
     Route: 058
     Dates: start: 1999
  2. LEVONORGESTREL W/ETHINYLESTRADIOL [Concomitant]
     Indication: ORAL CONTRACEPTION
     Dosage: 1 DF, QD
     Route: 048
  3. DITROPAN [Concomitant]
     Dosage: 2.5 MG, TID
     Route: 048

REACTIONS (3)
  - Malignant hypertension [Recovered/Resolved]
  - Convulsion [Recovered/Resolved]
  - Cerebral microangiopathy [Recovered/Resolved]
